FAERS Safety Report 7549645-0 (Version None)
Quarter: 2011Q2

REPORT INFORMATION
  Report Type: 
  Country: None (occurrence: None)
  Receive Date: 20110608
  Receipt Date: 20110510
  Transmission Date: 20111010
  Serious: Yes (Hospitalization, Other)
  Sender: FDA-Public Use
  Company Number: 144-21880-08060362

PATIENT

DRUGS (6)
  1. REVLIMID [Suspect]
     Indication: MYELOMA RECURRENCE
     Dosage: 22.8 MG, FOR 3 WEEKS, EVERY 4, PO
     Route: 048
  2. REVLIMID [Suspect]
     Indication: PLASMACYTOMA
     Dosage: 22.8 MG, FOR 3 WEEKS, EVERY 4, PO
     Route: 048
  3. ASPIRIN [Concomitant]
  4. DEXAMETHASONE [Concomitant]
  5. ANTICOAGULANT (ANTICOAGULANT SODIUM CITRATE) [Concomitant]
  6. HEPARIN [Concomitant]

REACTIONS (21)
  - SYNCOPE [None]
  - ASTHENIA [None]
  - DYSAESTHESIA [None]
  - DEEP VEIN THROMBOSIS [None]
  - CARDIAC FAILURE [None]
  - RENAL FAILURE [None]
  - DIARRHOEA [None]
  - HYPOALBUMINAEMIA [None]
  - NEUROPATHY PERIPHERAL [None]
  - FEBRILE NEUTROPENIA [None]
  - THROMBOCYTOPENIA [None]
  - NEUTROPENIA [None]
  - DISEASE PROGRESSION [None]
  - THALAMIC INFARCTION [None]
  - ANAEMIA [None]
  - RASH [None]
  - OSTEONECROSIS [None]
  - PANCREATITIS [None]
  - PNEUMONIA [None]
  - NAUSEA [None]
  - MYOCLONUS [None]
